FAERS Safety Report 6849116-0 (Version None)
Quarter: 2010Q3

REPORT INFORMATION
  Report Type: 
  Country: None (occurrence: None)
  Receive Date: 20100716
  Receipt Date: 20100625
  Transmission Date: 20110219
  Serious: Yes (Other)
  Sender: FDA-Public Use
  Company Number: CHPA2010US10821

PATIENT
  Age: 55 Year
  Sex: Female
  Weight: 68.027 kg

DRUGS (4)
  1. PREVACID 24 HR [Suspect]
     Indication: GASTROOESOPHAGEAL REFLUX DISEASE
     Dosage: 30 MG, BID
     Route: 048
     Dates: start: 20090101
  2. PREVACID 24 HR [Suspect]
     Indication: ULCER HAEMORRHAGE
  3. PREVACID 24 HR [Suspect]
     Indication: ABDOMINAL DISCOMFORT
  4. PREVACID 24 HR [Suspect]
     Indication: DYSPEPSIA

REACTIONS (9)
  - DRUG DEPENDENCE [None]
  - DYSPEPSIA [None]
  - INTENTIONAL DRUG MISUSE [None]
  - MALAISE [None]
  - OFF LABEL USE [None]
  - OVERDOSE [None]
  - PAIN [None]
  - VOMITING [None]
  - WRONG TECHNIQUE IN DRUG USAGE PROCESS [None]
